FAERS Safety Report 13039292 (Version 1)
Quarter: 2016Q4

REPORT INFORMATION
  Report Type: Spontaneous
  Country: US (occurrence: US)
  Receive Date: 20161216
  Receipt Date: 20161216
  Transmission Date: 20170207
  Serious: Yes (Hospitalization)
  Sender: FDA-Public Use
  Company Number: None

PATIENT
  Age: 70 Year
  Sex: Male
  Weight: 98.2 kg

DRUGS (3)
  1. RITUXIMAB (MOAB C2B8 ANTI CD20, CHIMERIC) [Suspect]
     Active Substance: RITUXIMAB
     Dates: end: 20161208
  2. VELCADE [Suspect]
     Active Substance: BORTEZOMIB
     Dates: end: 20161208
  3. BENDAMUSTINE HYDROCHLORIDE. [Suspect]
     Active Substance: BENDAMUSTINE HYDROCHLORIDE
     Dates: end: 20161208

REACTIONS (3)
  - Chest pain [None]
  - Ischaemia [None]
  - Cardiac stress test abnormal [None]

NARRATIVE: CASE EVENT DATE: 20161209
